FAERS Safety Report 8520782-7 (Version None)
Quarter: 2012Q3

REPORT INFORMATION
  Report Type: 
  Country: None (occurrence: None)
  Receive Date: 20120719
  Receipt Date: 20120709
  Transmission Date: 20120928
  Serious: Yes (Other)
  Sender: FDA-Public Use
  Company Number: US-JNJFOC-20120704175

PATIENT
  Sex: Female
  Weight: 62.6 kg

DRUGS (3)
  1. FOLIC ACID [Concomitant]
     Indication: ARTHRITIS
     Dosage: 1 PER DAY
     Route: 048
  2. METHOTREXATE [Concomitant]
     Dosage: 2.5 TO 8 TABLETS PER WEEK
     Route: 048
  3. REMICADE [Suspect]
     Indication: RHEUMATOID ARTHRITIS
     Route: 042
     Dates: start: 20111201

REACTIONS (8)
  - NEOPLASM MALIGNANT [None]
  - PULMONARY OEDEMA [None]
  - METASTASES TO SPINE [None]
  - PNEUMONIA [None]
  - BRONCHITIS VIRAL [None]
  - METASTASES TO LIVER [None]
  - RIB FRACTURE [None]
  - PULMONARY MASS [None]
